FAERS Safety Report 9692750 (Version 2)
Quarter: 2013Q4

REPORT INFORMATION
  Report Type: Report from Study
  Country: NZ (occurrence: NZ)
  Receive Date: 20131118
  Receipt Date: 20131224
  Transmission Date: 20140711
  Serious: No
  Sender: FDA-Public Use
  Company Number: PHHY2013NZ129685

PATIENT
  Age: 58 Year
  Sex: Male

DRUGS (6)
  1. CLOZARIL [Suspect]
     Indication: SCHIZOPHRENIA
     Dosage: 300 MG, NOCTE
     Route: 048
  2. FLUOXETINE [Concomitant]
     Dosage: 20 MG, MANE
     Route: 048
  3. SIMVASTATIN [Concomitant]
     Dosage: 20 MG, NOCTE
     Route: 048
  4. OXYBUTYNIN [Concomitant]
     Dosage: 5 MG, TID
     Route: 048
  5. MOVICOL [Concomitant]
     Indication: CONSTIPATION
     Dosage: UNK UKN, QD
     Route: 048
  6. MULTI-VIT [Concomitant]
     Dosage: UNK, QD

REACTIONS (2)
  - Weight decreased [Unknown]
  - Haemoglobin decreased [Not Recovered/Not Resolved]
